FAERS Safety Report 19199233 (Version 1)
Quarter: 2021Q2

REPORT INFORMATION
  Report Type: Spontaneous
  Country: GB (occurrence: GB)
  Receive Date: 20210430
  Receipt Date: 20210430
  Transmission Date: 20210717
  Serious: Yes (Life-Threatening, Hospitalization)
  Sender: FDA-Public Use
  Company Number: GB-TEVA-2021-GB-1905355

PATIENT
  Age: 21 Year
  Sex: Male
  Weight: 83 kg

DRUGS (1)
  1. MORPHINE [Suspect]
     Active Substance: MORPHINE
     Route: 065

REACTIONS (4)
  - Seizure [Unknown]
  - Intracranial mass [Not Recovered/Not Resolved]
  - Eye movement disorder [Unknown]
  - Biopsy brain [Not Recovered/Not Resolved]

NARRATIVE: CASE EVENT DATE: 20210407
